FAERS Safety Report 14425711 (Version 2)
Quarter: 2018Q1

REPORT INFORMATION
  Report Type: Spontaneous
  Country: US (occurrence: US)
  Receive Date: 20180123
  Receipt Date: 20180126
  Transmission Date: 20180509
  Serious: Yes (Disabling)
  Sender: FDA-Public Use
  Company Number: US-ASTRAZENECA-2018SE08556

PATIENT
  Sex: Female
  Weight: 97.1 kg

DRUGS (23)
  1. OMEPRAZOLE MAGNESIUM. [Suspect]
     Active Substance: OMEPRAZOLE MAGNESIUM
     Dosage: 40 MG AT SUPPERTIME
     Route: 048
  2. CITRULLINE [Concomitant]
     Active Substance: CITRULLINE
  3. MIRTAZAPINE. [Concomitant]
     Active Substance: MIRTAZAPINE
     Indication: SLEEP DISORDER
  4. GABAPENTIN. [Concomitant]
     Active Substance: GABAPENTIN
     Indication: NEUROPATHY PERIPHERAL
  5. LEVOTHYROXINE. [Concomitant]
     Active Substance: LEVOTHYROXINE
     Indication: THYROID DISORDER
  6. OXYCODONE [Concomitant]
     Active Substance: OXYCODONE
     Dosage: 5/325 AS NEEDED
  7. PROLIA [Concomitant]
     Active Substance: DENOSUMAB
  8. POLYETHYLENE GLYCOL [Concomitant]
     Active Substance: POLYETHYLENE GLYCOLS
     Dosage: 2.0DF UNKNOWN
  9. ALLEGRA [Concomitant]
     Active Substance: FEXOFENADINE HYDROCHLORIDE
     Indication: HYPERSENSITIVITY
  10. LINZESS [Concomitant]
     Active Substance: LINACLOTIDE
  11. HUMALOG INSULIN PUMP [Concomitant]
  12. KLONOPIN [Concomitant]
     Active Substance: CLONAZEPAM
     Indication: BLOOD PRESSURE ABNORMAL
  13. HYDRALAZINE [Concomitant]
     Active Substance: HYDRALAZINE HYDROCHLORIDE
  14. TYLENOL EXTRA STRENTGH [Concomitant]
  15. VITAMIN D [Concomitant]
     Active Substance: CHOLECALCIFEROL
  16. ALPRAZOLAM. [Concomitant]
     Active Substance: ALPRAZOLAM
     Indication: ANXIETY
  17. SYMLIN [Suspect]
     Active Substance: PRAMLINTIDE ACETATE
     Dosage: 120 UNITS TWO TIMES A DAY
     Route: 058
  18. BUSPIRONE [Concomitant]
     Active Substance: BUSPIRONE HYDROCHLORIDE
  19. FOLIC ACID. [Concomitant]
     Active Substance: FOLIC ACID
  20. METFORMIN [Concomitant]
     Active Substance: METFORMIN HYDROCHLORIDE
  21. DILTIAZEM. [Concomitant]
     Active Substance: DILTIAZEM
     Indication: CARDIAC DISORDER
  22. SIMVASTATIN. [Concomitant]
     Active Substance: SIMVASTATIN
  23. TYLENOL PM EXTRA STRENGTH [Concomitant]
     Active Substance: ACETAMINOPHEN\DIPHENHYDRAMINE HYDROCHLORIDE
     Dosage: AT BEDTIME

REACTIONS (10)
  - Memory impairment [Unknown]
  - Migraine [Unknown]
  - Depression [Unknown]
  - Obsessive-compulsive disorder [Unknown]
  - Panic attack [Unknown]
  - Gastric ulcer [Unknown]
  - Neuropathy peripheral [Unknown]
  - Hypertension [Unknown]
  - Product quality issue [Unknown]
  - Back disorder [Not Recovered/Not Resolved]
